FAERS Safety Report 8524260-0 (Version None)
Quarter: 2012Q3

REPORT INFORMATION
  Report Type: 
  Country: None (occurrence: None)
  Receive Date: 20120720
  Receipt Date: 20120710
  Transmission Date: 20120928
  Serious: No
  Sender: FDA-Public Use
  Company Number: JP-PFIZER INC-2012079421

PATIENT
  Age: 91 Year
  Sex: Male
  Weight: 50 kg

DRUGS (3)
  1. ZOSYN [Suspect]
     Dosage: 2.25 G, 3X/DAY
     Dates: end: 20110322
  2. CLARITHROMYCIN [Concomitant]
     Indication: PNEUMONIA
     Dosage: 400 MG PER DAY
     Route: 048
     Dates: start: 20110312, end: 20110324
  3. ZOSYN [Suspect]
     Indication: PNEUMONIA
     Dosage: 4.5 G, 3X/DAY
     Route: 041
     Dates: start: 20110312

REACTIONS (2)
  - RENAL DISORDER [None]
  - LIVER DISORDER [None]
